FAERS Safety Report 8934157 (Version 1)
Quarter: 2012Q4

REPORT INFORMATION
  Report Type: 
  Country: US (occurrence: US)
  Receive Date: 20121129
  Receipt Date: 20121129
  Transmission Date: 20130627
  Serious: No
  Sender: FDA-Public Use
  Company Number: US-GLAXOSMITHKLINE-A0980974A

PATIENT
  Age: 57 Year
  Sex: Male

DRUGS (7)
  1. BUPROPION HYDROCHLORIDE [Suspect]
     Indication: PARKINSONISM
     Dosage: 150MG Per day
     Route: 048
     Dates: start: 2008, end: 20120609
  2. REQUIP [Suspect]
     Indication: PARKINSON^S DISEASE
     Dosage: 12MG Twice per day
     Route: 048
     Dates: start: 2006, end: 2010
  3. ROPINIROLE [Suspect]
     Indication: PARKINSON^S DISEASE
     Dosage: 12MG Twice per day
     Route: 048
  4. CARBIDOPA + LEVODOPA [Suspect]
  5. VESICARE [Concomitant]
  6. BUPROPION [Concomitant]
  7. METANX [Concomitant]
     Indication: SUPPLEMENTATION THERAPY

REACTIONS (2)
  - Drug ineffective [Unknown]
  - Condition aggravated [Unknown]
